FAERS Safety Report 9533978 (Version 3)
Quarter: 2013Q4

REPORT INFORMATION
  Report Type: Report from Study
  Country: TW (occurrence: TW)
  Receive Date: 20130918
  Receipt Date: 20131203
  Transmission Date: 20140711
  Serious: Yes (Hospitalization)
  Sender: FDA-Public Use
  Company Number: TW-ABBVIE-13P-153-1147694-00

PATIENT
  Age: 69 Year
  Sex: Male

DRUGS (7)
  1. HUMIRA [Suspect]
     Indication: RHEUMATOID ARTHRITIS
     Route: 058
     Dates: start: 20090505
  2. HUMIRA [Suspect]
     Dosage: 1 DOSE
     Dates: start: 20130902, end: 20130902
  3. EQUORAL [Concomitant]
     Indication: RHEUMATOID ARTHRITIS
     Route: 048
     Dates: start: 20111214
  4. ARCOXIA [Concomitant]
     Indication: RHEUMATOID ARTHRITIS
     Route: 048
     Dates: start: 20130501
  5. PREDNISOLONE [Concomitant]
     Indication: RHEUMATOID ARTHRITIS
     Route: 048
     Dates: start: 20130524
  6. NORVASC [Concomitant]
     Indication: HYPERTENSION
     Route: 048
     Dates: start: 20110610
  7. CO-DIOVAN [Concomitant]
     Indication: HYPERTENSION
     Route: 048
     Dates: start: 20100826

REACTIONS (4)
  - Vertebral osteophyte [Recovered/Resolved]
  - Wound infection [Recovered/Resolved]
  - Pyrexia [Recovered/Resolved]
  - Dyspnoea [Recovered/Resolved]
